FAERS Safety Report 22180674 (Version 1)
Quarter: 2023Q2

REPORT INFORMATION
  Report Type: Spontaneous
  Country: FR (occurrence: None)
  Receive Date: 20230406
  Receipt Date: 20230406
  Transmission Date: 20230722
  Serious: Yes (Hospitalization)
  Sender: FDA-Public Use
  Company Number: 2023A073592

PATIENT
  Age: 35 Year
  Sex: Female

DRUGS (17)
  1. DAPAGLIFLOZIN [Suspect]
     Active Substance: DAPAGLIFLOZIN
     Indication: Product used for unknown indication
  2. ATOVAQUONE [Suspect]
     Active Substance: ATOVAQUONE
     Indication: Parasitic infection prophylaxis
     Dosage: 12 - EVERY HOUR
  3. ICLUSIG [Suspect]
     Active Substance: PONATINIB
     Indication: Acute myeloid leukaemia
     Dates: start: 202302, end: 20230313
  4. ICLUSIG [Suspect]
     Active Substance: PONATINIB
     Indication: Acute myeloid leukaemia
     Dates: start: 2020, end: 2022
  5. IRBESARTAN [Suspect]
     Active Substance: IRBESARTAN
     Indication: Product used for unknown indication
  6. PREDNISONE [Suspect]
     Active Substance: PREDNISONE
     Indication: Prophylaxis against graft versus host disease
  7. VALACYCLOVIR HYDROCHLORIDE [Suspect]
     Active Substance: VALACYCLOVIR HYDROCHLORIDE
     Indication: Antiviral prophylaxis
  8. LEUCOVORIN CALCIUM [Suspect]
     Active Substance: LEUCOVORIN CALCIUM
     Indication: Vitamin supplementation
     Dosage: JEUDI15.0MG UNKNOWN
  9. LEUCOVORIN CALCIUM [Suspect]
     Active Substance: LEUCOVORIN CALCIUM
     Indication: Vitamin supplementation
     Dosage: LUNDI15.0MG UNKNOWN
  10. CYCLOSPORINE [Suspect]
     Active Substance: CYCLOSPORINE
     Indication: Prophylaxis against graft versus host disease
     Dates: end: 20230313
  11. CYCLOSPORINE [Suspect]
     Active Substance: CYCLOSPORINE
     Indication: Prophylaxis against graft versus host disease
     Dates: start: 20230313
  12. BORIC ACID\SODIUM BORATE [Concomitant]
     Active Substance: BORIC ACID\SODIUM BORATE
     Indication: Product used for unknown indication
  13. SYMBICORT [Concomitant]
     Active Substance: BUDESONIDE\FORMOTEROL FUMARATE DIHYDRATE
     Indication: Product used for unknown indication
  14. CETHEXONIUM BROMIDE [Concomitant]
     Active Substance: CETHEXONIUM BROMIDE
     Indication: Product used for unknown indication
  15. FLUCON [Concomitant]
     Indication: Product used for unknown indication
  16. RETINOL [Concomitant]
     Active Substance: RETINOL
     Indication: Product used for unknown indication
  17. SPIRIVA [Concomitant]
     Active Substance: TIOTROPIUM BROMIDE MONOHYDRATE
     Indication: Product used for unknown indication

REACTIONS (1)
  - Ischaemic stroke [Recovered/Resolved]

NARRATIVE: CASE EVENT DATE: 20230313
